FAERS Safety Report 9474656 (Version 2)
Quarter: 2013Q3

REPORT INFORMATION
  Report Type: Spontaneous
  Country: GB (occurrence: GB)
  Receive Date: 20130823
  Receipt Date: 20130823
  Transmission Date: 20140515
  Serious: Yes (Other)
  Sender: FDA-Public Use
  Company Number: GB-LUNDBECK-DKLU1092312

PATIENT
  Age: 8 Month
  Sex: 0

DRUGS (2)
  1. SABRIL (FOR ORAL SOLUTION) [Suspect]
     Indication: INFANTILE SPASMS
  2. PREDNISOLONE [Concomitant]
     Indication: INFANTILE SPASMS

REACTIONS (2)
  - Choreoathetosis [Recovered/Resolved]
  - Nuclear magnetic resonance imaging brain abnormal [Unknown]
